FAERS Safety Report 8429665 (Version 5)
Quarter: 2012Q4

REPORT INFORMATION
  Report Type: 
  Country: US (occurrence: US)
  Receive Date: 20120227
  Receipt Date: 20121024
  Transmission Date: 20130627
  Serious: Yes (Other)
  Sender: FDA-Public Use
  Company Number: US-ASTRAZENECA-2010SE61376

PATIENT
  Age: 55 Year
  Sex: Female

DRUGS (3)
  1. NEXIUM [Suspect]
     Route: 048
  2. PRILOSEC [Suspect]
     Route: 048
  3. CRESTOR [Suspect]
     Route: 048

REACTIONS (6)
  - Cerebral haemorrhage [Unknown]
  - Lower limb fracture [Unknown]
  - Ruptured cerebral aneurysm [Unknown]
  - Mental disorder [Unknown]
  - Memory impairment [Unknown]
  - Malaise [Unknown]
